FAERS Safety Report 9390885 (Version 1)
Quarter: 2013Q3

REPORT INFORMATION
  Report Type: Spontaneous
  Country: US (occurrence: None)
  Receive Date: 20130705
  Receipt Date: 20130705
  Transmission Date: 20140515
  Serious: No
  Sender: FDA-Public Use
  Company Number: 265808

PATIENT
  Age: 52 Year
  Sex: Female
  Weight: 64.9 kg

DRUGS (1)
  1. VINCRISTINE SULFATE [Suspect]
     Indication: LEUKAEMIA
     Route: 058
     Dates: start: 20090422, end: 20090422

REACTIONS (3)
  - Blister [None]
  - Erythema [None]
  - Incorrect route of drug administration [None]
